FAERS Safety Report 5341611-9 (Version None)
Quarter: 2007Q2

REPORT INFORMATION
  Report Type: 
  Country: None (occurrence: None)
  Receive Date: 20070529
  Receipt Date: 20070529
  Transmission Date: 20071010
  Serious: No
  Sender: FDA-Public Use
  Company Number: None

PATIENT
  Age: 30 Year
  Sex: Female
  Weight: 99.7913 kg

DRUGS (4)
  1. EQUATE IBUPROFEN TABLETS 200 MG EACH [Suspect]
     Indication: HEADACHE
     Dosage: 2 CAPLETS ONCE
     Dates: start: 20070101
  2. EQUATE IBUPROFEN TABLETS 200 MG EACH [Suspect]
     Indication: MYALGIA
     Dosage: 2 CAPLETS ONCE
     Dates: start: 20070101
  3. EQUATE IBUPROFEN TABLETS 200 MG EACH [Suspect]
     Indication: HEADACHE
     Dosage: 2 CAPLETS ONCE
     Dates: start: 20070301
  4. EQUATE IBUPROFEN TABLETS 200 MG EACH [Suspect]
     Indication: MYALGIA
     Dosage: 2 CAPLETS ONCE
     Dates: start: 20070301

REACTIONS (3)
  - MALAISE [None]
  - NAUSEA [None]
  - VOMITING [None]
